FAERS Safety Report 13285736 (Version 11)
Quarter: 2017Q3

REPORT INFORMATION
  Report Type: Report from Study
  Country: IT (occurrence: IT)
  Receive Date: 20170302
  Receipt Date: 20170927
  Transmission Date: 20171127
  Serious: Yes (Other)
  Sender: FDA-Public Use
  Company Number: IT-EISAI MEDICAL RESEARCH-EC-2017-025490

PATIENT
  Age: 18 Year
  Sex: Female
  Weight: 95.5 kg

DRUGS (11)
  1. LENVATINIB [Suspect]
     Active Substance: LENVATINIB
     Route: 048
     Dates: start: 20170306, end: 20170326
  2. RAMIPRIL. [Concomitant]
     Active Substance: RAMIPRIL
  3. LENVATINIB [Suspect]
     Active Substance: LENVATINIB
     Route: 048
     Dates: start: 20170424, end: 20170628
  4. LYRICA [Concomitant]
     Active Substance: PREGABALIN
  5. LENVATINIB [Suspect]
     Active Substance: LENVATINIB
     Indication: OSTEOSARCOMA
     Route: 048
     Dates: start: 20170119, end: 20170226
  6. LENVATINIB [Suspect]
     Active Substance: LENVATINIB
     Route: 048
     Dates: start: 20170331, end: 20170418
  7. RABEPRAZOLE [Concomitant]
     Active Substance: RABEPRAZOLE
  8. LEVOTHYROXINE. [Concomitant]
     Active Substance: LEVOTHYROXINE
  9. RIVOTRIL [Concomitant]
     Active Substance: CLONAZEPAM
  10. METOPROLOL. [Concomitant]
     Active Substance: METOPROLOL
  11. MORPHINE SULFATE. [Concomitant]
     Active Substance: MORPHINE SULFATE

REACTIONS (1)
  - Platelet count decreased [Recovered/Resolved]

NARRATIVE: CASE EVENT DATE: 20170227
